FAERS Safety Report 8925590 (Version 1)
Quarter: 2012Q4

REPORT INFORMATION
  Report Type: 
  Country: BR (occurrence: BR)
  Receive Date: 20121126
  Receipt Date: 20121126
  Transmission Date: 20130627
  Serious: Yes (Hospitalization, Other)
  Sender: FDA-Public Use
  Company Number: BR-PFIZER INC-2012292517

PATIENT
  Age: 48 Year
  Sex: Male
  Weight: 82 kg

DRUGS (7)
  1. FRONTAL [Suspect]
     Indication: DEPRESSION
     Dosage: 1 tablet (2 mg), 1x/day
     Route: 048
     Dates: start: 2010, end: 2011
  2. FRONTAL [Suspect]
     Indication: ANXIETY
     Dosage: 2 mg, 2x/day
     Route: 048
     Dates: start: 2011
  3. FRONTAL [Suspect]
     Indication: HYPERTENSION
  4. FRONTAL [Suspect]
     Indication: SLEEP DISORDER
  5. ALPRAZOLAM [Suspect]
     Dosage: UNK
     Route: 048
     Dates: start: 2012, end: 2012
  6. VALDOXAN [Concomitant]
     Indication: ANTIDEPRESSANT THERAPY
     Dosage: UNK
  7. JANUMET 50/1000 [Concomitant]
     Indication: DIABETES
     Dosage: UNK

REACTIONS (8)
  - Intentional drug misuse [Not Recovered/Not Resolved]
  - Gastrointestinal bacterial infection [Not Recovered/Not Resolved]
  - Hyperglycaemic seizure [Recovered/Resolved]
  - Epilepsy [Recovered/Resolved]
  - Anxiety [Recovered/Resolved]
  - Drug dependence [Not Recovered/Not Resolved]
  - Depression [Unknown]
  - Drug ineffective [Unknown]
